FAERS Safety Report 9367692 (Version 3)
Quarter: 2013Q4

REPORT INFORMATION
  Report Type: Spontaneous
  Country: JP (occurrence: JP)
  Receive Date: 20130625
  Receipt Date: 20131001
  Transmission Date: 20140711
  Serious: No
  Sender: FDA-Public Use
  Company Number: JP-009507513-1306JPN010434

PATIENT
  Age: 66 Year
  Sex: Female

DRUGS (6)
  1. REFLEX [Suspect]
     Indication: DEPRESSION
     Dosage: 30 MG/DAY, HS
     Route: 048
     Dates: start: 201001, end: 20130530
  2. MAGNESIUM OXIDE [Concomitant]
     Indication: CONSTIPATION
     Dosage: 250MG DAILY
     Route: 048
     Dates: start: 201001
  3. ROSUVASTATIN CALCIUM [Concomitant]
     Indication: HYPERLIPIDAEMIA
     Dosage: 5MG DAILY
     Route: 048
     Dates: start: 20121229
  4. LORAZEPAM [Concomitant]
     Indication: ANXIETY
     Dosage: 1.5 MG DAILY
     Route: 048
     Dates: start: 201001
  5. ZOLPIDEM TARTRATE [Concomitant]
     Indication: INSOMNIA
     Dosage: 10MG DAILY
     Route: 048
     Dates: start: 201001
  6. BROTIZOLAM [Concomitant]
     Indication: INSOMNIA
     Dosage: 0.25MG DAILY
     Route: 048
     Dates: start: 201001

REACTIONS (4)
  - Hyperhidrosis [Recovered/Resolved]
  - Asthenia [Recovered/Resolved]
  - Palpitations [Recovered/Resolved]
  - Blood pressure increased [Recovered/Resolved]
